FAERS Safety Report 9163792 (Version 1)
Quarter: 2013Q1

REPORT INFORMATION
  Report Type: Spontaneous
  Country: FR (occurrence: FR)
  Receive Date: 20130314
  Receipt Date: 20130314
  Transmission Date: 20140127
  Serious: Yes (Congenital Anomaly)
  Sender: FDA-Public Use
  Company Number: FR-GALDERMA-FR-GDP-11412410

PATIENT
  Age: 37 Year
  Sex: Female

DRUGS (1)
  1. EPIDUO [Suspect]
     Indication: ACNE
     Route: 061
     Dates: start: 20110114, end: 20110610

REACTIONS (1)
  - Fallot^s tetralogy [Recovered/Resolved]
